FAERS Safety Report 9067700 (Version 1)
Quarter: 2013Q1

REPORT INFORMATION
  Report Type: Spontaneous
  Country: BR (occurrence: BR)
  Receive Date: 20130206
  Receipt Date: 20130206
  Transmission Date: 20140127
  Serious: Yes (Hospitalization)
  Sender: FDA-Public Use
  Company Number: BR-ASTRAZENECA-2013SE06656

PATIENT
  Age: 806 Month
  Sex: Female
  Weight: 70 kg

DRUGS (5)
  1. SYMBICORT TURBUHALER [Suspect]
     Indication: ASTHMA
     Dosage: 320/9 MCG, TWO TIMES A DAY
     Route: 055
     Dates: start: 2005, end: 201212
  2. SYMBICORT TURBUHALER [Suspect]
     Indication: ASTHMA
     Dosage: 320/9 MCG, THREE TIMES A DAY
     Route: 055
     Dates: start: 201212
  3. BUDECORT [Suspect]
     Indication: HYPERSENSITIVITY
     Route: 045
     Dates: start: 200704
  4. VYTORIN [Concomitant]
     Indication: BLOOD CHOLESTEROL INCREASED
     Route: 048
  5. DAFLON [Concomitant]
     Route: 048
     Dates: start: 200704

REACTIONS (4)
  - Cerebrovascular accident [Recovered/Resolved]
  - Carotid artery occlusion [Unknown]
  - Hypersensitivity [Recovering/Resolving]
  - Cough [Recovered/Resolved]
